FAERS Safety Report 9216014 (Version 1)
Quarter: 2013Q2

REPORT INFORMATION
  Report Type: Spontaneous
  Country: HU (occurrence: HU)
  Receive Date: 20130408
  Receipt Date: 20130408
  Transmission Date: 20140414
  Serious: Yes (Other)
  Sender: FDA-Public Use
  Company Number: HU-TEVA-394847ISR

PATIENT
  Sex: 0

DRUGS (1)
  1. CARBOPLATIN [Suspect]

REACTIONS (1)
  - Stevens-Johnson syndrome [Unknown]
